FAERS Safety Report 4432249-6 (Version None)
Quarter: 2004Q3

REPORT INFORMATION
  Report Type: 
  Country: None (occurrence: None)
  Receive Date: 20040825
  Receipt Date: 20030929
  Transmission Date: 20050211
  Serious: Yes (Disabling, Other)
  Sender: FDA-Public Use
  Company Number: US-MERCK-0310USA00078

PATIENT
  Age: 38 Year
  Sex: Male
  Weight: 102 kg

DRUGS (4)
  1. LORTAB [Concomitant]
     Indication: PAIN
     Route: 065
  2. ASPIRIN [Concomitant]
     Indication: BLOOD DISORDER
     Route: 065
  3. VIOXX [Suspect]
     Indication: RHEUMATOID ARTHRITIS
     Route: 048
     Dates: start: 19990101, end: 20020101
  4. VIOXX [Suspect]
     Indication: PAIN
     Route: 048
     Dates: start: 19990101, end: 20020101

REACTIONS (19)
  - ARTHRALGIA [None]
  - ASTHENIA [None]
  - BACK PAIN [None]
  - BRONCHITIS [None]
  - CHEST PAIN [None]
  - CONSTIPATION [None]
  - EMOTIONAL DISTRESS [None]
  - FEELING ABNORMAL [None]
  - GROIN PAIN [None]
  - HYPERCHOLESTEROLAEMIA [None]
  - HYPERTENSION [None]
  - INFLUENZA [None]
  - LOCALISED OSTEOARTHRITIS [None]
  - OVERDOSE [None]
  - POLYURIA [None]
  - RECTAL HAEMORRHAGE [None]
  - ROTATOR CUFF SYNDROME [None]
  - SEXUAL DYSFUNCTION [None]
  - UPPER LIMB FRACTURE [None]
